FAERS Safety Report 21837892 (Version 3)
Quarter: 2023Q1

REPORT INFORMATION
  Report Type: Spontaneous
  Country: US (occurrence: US)
  Receive Date: 20230109
  Receipt Date: 20230309
  Transmission Date: 20230418
  Serious: Yes (Hospitalization, Other)
  Sender: FDA-Public Use
  Company Number: US-PFIZER INC-202300004735

PATIENT
  Age: 69 Year
  Sex: Female
  Weight: 72.12 kg

DRUGS (5)
  1. IBRANCE [Suspect]
     Active Substance: PALBOCICLIB
     Indication: Breast cancer female
     Dosage: 125 MG, CYCLIC, (THINKS THE DOSE IS 1.25 AND TAKES IT DAILY FOR 21 DAYS / 21DAYS DAILY)
     Dates: start: 201709
  2. LETROZOLE [Concomitant]
     Active Substance: LETROZOLE
     Dosage: UNK, DAILY
     Dates: start: 201709
  3. UMECLIDINIUM BROMIDE\VILANTEROL TRIFENATATE [Concomitant]
     Active Substance: UMECLIDINIUM BROMIDE\VILANTEROL TRIFENATATE
     Indication: Chronic obstructive pulmonary disease
     Dosage: UNK
     Dates: start: 201510
  4. UMECLIDINIUM BROMIDE\VILANTEROL TRIFENATATE [Concomitant]
     Active Substance: UMECLIDINIUM BROMIDE\VILANTEROL TRIFENATATE
     Dosage: UNK, DAILY (DAILY INHALER)
     Dates: start: 2017
  5. ALBUTEROL SULFATE [Concomitant]
     Active Substance: ALBUTEROL SULFATE
     Dosage: UNK (RESCUE INHALER)
     Dates: start: 201510

REACTIONS (21)
  - Hernia repair [Unknown]
  - Breast conserving surgery [Unknown]
  - Fatigue [Not Recovered/Not Resolved]
  - Asthenia [Not Recovered/Not Resolved]
  - Bone pain [Not Recovered/Not Resolved]
  - Alopecia [Not Recovered/Not Resolved]
  - Arthralgia [Not Recovered/Not Resolved]
  - Quality of life decreased [Not Recovered/Not Resolved]
  - Chronic obstructive pulmonary disease [Not Recovered/Not Resolved]
  - Arterial injury [Unknown]
  - Depressed mood [Unknown]
  - Myalgia [Not Recovered/Not Resolved]
  - Arthralgia [Not Recovered/Not Resolved]
  - Feeling abnormal [Not Recovered/Not Resolved]
  - Ageusia [Unknown]
  - Anosmia [Unknown]
  - Alopecia [Unknown]
  - Hair growth abnormal [Unknown]
  - Nail disorder [Unknown]
  - Tooth disorder [Unknown]
  - Nasal septum perforation [Unknown]

NARRATIVE: CASE EVENT DATE: 20210101
